FAERS Safety Report 25309197 (Version 1)
Quarter: 2025Q2

REPORT INFORMATION
  Report Type: Spontaneous
  Country: NZ (occurrence: NZ)
  Receive Date: 20250513
  Receipt Date: 20250513
  Transmission Date: 20250717
  Serious: Yes (Other)
  Sender: ALEXION PHARMACEUTICALS
  Company Number: NZ-AstraZeneca-CH-00865316A

PATIENT

DRUGS (2)
  1. PULMICORT TURBUHALER [Suspect]
     Active Substance: BUDESONIDE
     Indication: Cardiorenal syndrome
     Route: 065
  2. MUCOSA [Concomitant]
     Active Substance: GUAIFENESIN

REACTIONS (2)
  - Steroid withdrawal syndrome [Unknown]
  - Off label use [Unknown]
